FAERS Safety Report 9703976 (Version 1)
Quarter: 2013Q4

REPORT INFORMATION
  Report Type: Spontaneous
  Country: GB (occurrence: GB)
  Receive Date: 20131122
  Receipt Date: 20131122
  Transmission Date: 20140711
  Serious: Yes (Life-Threatening, Hospitalization)
  Sender: FDA-Public Use
  Company Number: GB-TEVA-444356ISR

PATIENT
  Age: 88 Year
  Sex: Male

DRUGS (12)
  1. FLUCONAZOLE [Suspect]
     Dosage: 50 MILLIGRAM DAILY; STOPPED FOLLOWING HOSPITAL ADMISSION.
     Route: 048
     Dates: start: 20130830, end: 20130904
  2. BENDROFLUMETHIAZIDE [Suspect]
     Dosage: 2.5 MILLIGRAM DAILY; BEEN TAKING FOR YEARS. CONSULTANT DOES NOT CONSIDER A SUSPECT DRUG.
     Route: 048
     Dates: end: 20130904
  3. NYSTATIN [Concomitant]
     Dosage: 100,000 UNITS/ML ORAL SUSPENSION
     Route: 048
     Dates: start: 20130829
  4. TAMSULOSIN [Concomitant]
     Dosage: 400 MICROGRAM DAILY; LONG-TERM
     Route: 048
  5. CETIRIZINE [Concomitant]
     Dosage: 10 MILLIGRAM DAILY; STOPPED DUE TO RENAL FUNCTION.
     Route: 048
     Dates: end: 20130904
  6. TIOTROPIUM [Concomitant]
     Dosage: 18 MICROGRAM DAILY; LONG TERM
     Route: 050
  7. ALLOPURINOL [Concomitant]
     Dosage: DOSE REDUCED ON ADMISSION DUE TO RENAL FUNCTION
     Route: 048
  8. SIMVASTATIN [Concomitant]
     Dosage: 40 MILLIGRAM DAILY; STOPPED ON ADMISSION DUE TO GENERAL POOR HEALTH AND RENAL FUNCTION
     Route: 048
     Dates: end: 20130904
  9. METFORMIN [Concomitant]
     Dosage: 500 MILLIGRAM DAILY; MORNING.STOPPED ON ADMISSION
     Route: 048
     Dates: end: 20130904
  10. SALMETEROL AND FLUTICASONE [Concomitant]
     Route: 050
  11. MOVICOL [Concomitant]
     Dosage: NORGINE PHARMACEUTICALS LTD, ORAL POWDER
     Route: 048
  12. OTOMIZE [Concomitant]
     Dosage: GLAXOSMITHKLINE CONSUMER HEALTHCARE, EAR SPRAY .
     Route: 001
     Dates: start: 20130820

REACTIONS (4)
  - Hyponatraemia [Recovered/Resolved]
  - Delirium [Unknown]
  - Renal impairment [Unknown]
  - Malaise [Unknown]
